FAERS Safety Report 15479102 (Version 1)
Quarter: 2018Q4

REPORT INFORMATION
  Report Type: Spontaneous
  Country: US (occurrence: US)
  Receive Date: 20181003
  Receipt Date: 20181003
  Transmission Date: 20190205
  Serious: Yes (Disabling)
  Sender: FDA-Public Use
  Company Number: None

PATIENT
  Age: 54 Year
  Sex: Female
  Weight: 81.65 kg

DRUGS (5)
  1. FLUTICASONE PROPIONATE. [Concomitant]
     Active Substance: FLUTICASONE PROPIONATE
  2. PSEUDOEPHEDRINE HCL [Concomitant]
     Active Substance: PSEUDOEPHEDRINE HYDROCHLORIDE
  3. VENTOLIN HFA [Concomitant]
     Active Substance: ALBUTEROL SULFATE
  4. LORATADINE. [Concomitant]
     Active Substance: LORATADINE
  5. BUPROPION HCL ER [Suspect]
     Active Substance: BUPROPION HYDROCHLORIDE
     Indication: WEIGHT CONTROL
     Dosage: IN THE MORNING
     Route: 048
     Dates: start: 20180720, end: 20180902

REACTIONS (10)
  - Acne cystic [None]
  - Depression [None]
  - Skin lesion [None]
  - Angina pectoris [None]
  - Muscle spasms [None]
  - Skin ulcer haemorrhage [None]
  - Scar [None]
  - Pain of skin [None]
  - Chest pain [None]
  - Drug ineffective [None]

NARRATIVE: CASE EVENT DATE: 20180820
